FAERS Safety Report 16562003 (Version 1)
Quarter: 2019Q3

REPORT INFORMATION
  Report Type: Spontaneous
  Country: FR (occurrence: FR)
  Receive Date: 20190711
  Receipt Date: 20190711
  Transmission Date: 20191004
  Serious: Yes (Hospitalization)
  Sender: FDA-Public Use
  Company Number: FR-MYLANLABS-2019M1063687

PATIENT
  Age: 68 Year
  Sex: Female

DRUGS (10)
  1. XANAX [Concomitant]
     Active Substance: ALPRAZOLAM
  2. BISOPROLOL [Concomitant]
     Active Substance: BISOPROLOL
  3. PARACETAMOL [Concomitant]
     Active Substance: ACETAMINOPHEN
  4. VALSARTAN. [Suspect]
     Active Substance: VALSARTAN
     Indication: HYPERTENSION
     Dosage: 80 MILLIGRAM, QD
     Route: 048
  5. NEFOPAM [Concomitant]
     Active Substance: NEFOPAM
  6. DULOXETINE. [Suspect]
     Active Substance: DULOXETINE
     Indication: NEURALGIA
     Dosage: 30 MILLIGRAM, QD
     Route: 048
     Dates: start: 20181221, end: 20190101
  7. ACTISKENAN [Suspect]
     Active Substance: MORPHINE SULFATE
     Indication: NEURALGIA
     Route: 048
  8. SKENAN [Suspect]
     Active Substance: MORPHINE SULFATE
     Indication: NEURALGIA
     Route: 048
  9. AMOXIC.AC.CLAVUL. [Concomitant]
  10. TAHOR [Concomitant]
     Active Substance: ATORVASTATIN CALCIUM

REACTIONS (3)
  - Hypokalaemia [Recovered/Resolved]
  - Hyponatraemia [Recovered/Resolved]
  - Tonic clonic movements [Recovered/Resolved]

NARRATIVE: CASE EVENT DATE: 20190101
